FAERS Safety Report 14533157 (Version 1)
Quarter: 2018Q1

REPORT INFORMATION
  Report Type: Report from Study
  Country: FR (occurrence: FR)
  Receive Date: 20180215
  Receipt Date: 20180215
  Transmission Date: 20180509
  Serious: Yes (Other)
  Sender: FDA-Public Use
  Company Number: FR-CONCORDIA PHARMACEUTICALS INC.-E2B_00009870

PATIENT
  Age: 81 Year
  Sex: Male
  Weight: 74 kg

DRUGS (3)
  1. FLUOROURACIL. [Suspect]
     Active Substance: FLUOROURACIL
     Indication: PANCREATIC NEUROENDOCRINE TUMOUR
     Dosage: 5030 MG, CYCLIC (EVERY 28 DAYS); CYCLICAL
     Dates: start: 20160620
  2. PREDNISOLONE. [Suspect]
     Active Substance: PREDNISOLONE
  3. OXALIPLATIN. [Suspect]
     Active Substance: OXALIPLATIN
     Indication: PANCREATIC NEUROENDOCRINE TUMOUR
     Dosage: 150 MG, UNK
     Dates: start: 20160620

REACTIONS (7)
  - Asthenia [Recovered/Resolved]
  - Diarrhoea [Recovered/Resolved]
  - Dyspepsia [Recovering/Resolving]
  - Arrhythmia [Recovered/Resolved]
  - Asthenia [Recovering/Resolving]
  - Asthenia [Recovered/Resolved]
  - Renal failure [Recovered/Resolved]

NARRATIVE: CASE EVENT DATE: 201607
